FAERS Safety Report 6921709-1 (Version None)
Quarter: 2010Q3

REPORT INFORMATION
  Report Type: 
  Country: None (occurrence: None)
  Receive Date: 20100812
  Receipt Date: 20100803
  Transmission Date: 20110219
  Serious: Yes (Other)
  Sender: FDA-Public Use
  Company Number: US-JNJFOC-20100402454

PATIENT
  Sex: Female
  Weight: 90.72 kg

DRUGS (8)
  1. REMICADE [Suspect]
     Indication: PSORIATIC ARTHROPATHY
     Dosage: 3 INFUSIONS TOTAL
     Route: 042
  2. REMICADE [Suspect]
     Route: 042
  3. REMICADE [Suspect]
     Indication: PSORIASIS
     Route: 042
  4. REMICADE [Suspect]
     Dosage: 3 INFUSIONS TOTAL
     Route: 042
  5. METHOTREXATE [Concomitant]
     Indication: PSORIASIS
  6. PREVACID [Concomitant]
     Indication: GASTROOESOPHAGEAL REFLUX DISEASE
  7. DARVOCET [Concomitant]
  8. CAPADEX [Concomitant]

REACTIONS (1)
  - LUPUS-LIKE SYNDROME [None]
